FAERS Safety Report 19717203 (Version 1)
Quarter: 2021Q3

REPORT INFORMATION
  Report Type: Spontaneous
  Country: US (occurrence: US)
  Receive Date: 20210818
  Receipt Date: 20210818
  Transmission Date: 20211014
  Serious: No
  Sender: FDA-Public Use
  Company Number: US-ORGANON-O2108USA001199

PATIENT
  Sex: Female

DRUGS (1)
  1. NEXPLANON [Suspect]
     Active Substance: ETONOGESTREL
     Dosage: 1 IMPLANT ROD EVERY 3 YEARS IN THE ARM
     Route: 059
     Dates: start: 20210629

REACTIONS (1)
  - Medical device site discomfort [Unknown]

NARRATIVE: CASE EVENT DATE: 2021
